FAERS Safety Report 5930400-X (Version None)
Quarter: 2008Q4

REPORT INFORMATION
  Report Type: 
  Country: None (occurrence: None)
  Receive Date: 20081022
  Receipt Date: 20081016
  Transmission Date: 20090506
  Serious: Yes (Other)
  Sender: FDA-Public Use
  Company Number: CHNY2008FR02561

PATIENT
  Age: 69 Year
  Sex: Male

DRUGS (5)
  1. SCOPOLAMINE [Suspect]
     Indication: PROPHYLAXIS AGAINST MOTION SICKNESS
     Dosage: 1 DF, Q72H, TRANSDERMAL
     Route: 062
     Dates: start: 20080407, end: 20080401
  2. SCOPOLAMINE [Suspect]
     Indication: PROPHYLAXIS AGAINST MOTION SICKNESS
     Dosage: 1 DF, Q72H, TRANSDERMAL
     Route: 062
     Dates: start: 20080423, end: 20080425
  3. ATACAND [Concomitant]
  4. ATORVASTATIN CALCIUM [Concomitant]
  5. ASPIRIN [Concomitant]

REACTIONS (4)
  - ACTIVITIES OF DAILY LIVING IMPAIRED [None]
  - ANOSMIA [None]
  - OLFACTORY TEST ABNORMAL [None]
  - PAROSMIA [None]
